FAERS Safety Report 15297085 (Version 2)
Quarter: 2018Q3

REPORT INFORMATION
  Report Type: Report from Study
  Country: US (occurrence: US)
  Receive Date: 20180820
  Receipt Date: 20180905
  Transmission Date: 20181010
  Serious: No
  Sender: FDA-Public Use
  Company Number: US-SHIRE-US201831810

PATIENT
  Sex: Male

DRUGS (2)
  1. C1 INHIBITOR (HUMAN) [Suspect]
     Active Substance: HUMAN C1-ESTERASE INHIBITOR
     Indication: PRODUCT USED FOR UNKNOWN INDICATION
     Route: 065
  2. FIRAZYR [Suspect]
     Active Substance: ICATIBANT ACETATE
     Indication: PRODUCT USED FOR UNKNOWN INDICATION
     Route: 065

REACTIONS (13)
  - Renal disorder [Unknown]
  - Panic reaction [Unknown]
  - Anxiety [Unknown]
  - Hyperhidrosis [Unknown]
  - Hereditary angioedema [Unknown]
  - Muscle spasms [Unknown]
  - Ill-defined disorder [Unknown]
  - Tremor [Unknown]
  - Stress [Unknown]
  - Abdominal pain upper [Unknown]
  - Discomfort [Unknown]
  - Emotional disorder [Unknown]
  - Thinking abnormal [Unknown]
